FAERS Safety Report 6428341-7 (Version None)
Quarter: 2009Q4

REPORT INFORMATION
  Report Type: 
  Country: None (occurrence: None)
  Receive Date: 20091104
  Receipt Date: 20091104
  Transmission Date: 20100525
  Serious: Yes (Hospitalization)
  Sender: FDA-Public Use
  Company Number: None

PATIENT
  Age: 68 Year

DRUGS (2)
  1. PEMETREXED [Suspect]
     Indication: LUNG CANCER METASTATIC
     Dosage: 950 MG ONCE IV
     Route: 042
     Dates: start: 20090406, end: 20090406
  2. ZOLEDRONIC [Suspect]
     Indication: METASTASES TO BONE
     Dosage: 3.5 MG ONCE IV
     Route: 042
     Dates: start: 20090406, end: 20090406

REACTIONS (4)
  - DECREASED APPETITE [None]
  - DYSPNOEA [None]
  - PYREXIA [None]
  - RENAL FAILURE ACUTE [None]
